FAERS Safety Report 22921404 (Version 2)
Quarter: 2024Q3

REPORT INFORMATION
  Report Type: Spontaneous
  Country: US (occurrence: None)
  Receive Date: 20230908
  Receipt Date: 20240906
  Transmission Date: 20241017
  Serious: No
  Sender: DOMPE FARMACEUTICI
  Company Number: US-FARMAPROD-202306-1679

PATIENT
  Age: 47 Year
  Sex: Female
  Weight: 72.57 kg

DRUGS (14)
  1. OXERVATE [Suspect]
     Active Substance: CENEGERMIN-BKBJ
     Indication: Neurotrophic keratopathy
     Route: 047
     Dates: start: 20230525
  2. OXERVATE [Suspect]
     Active Substance: CENEGERMIN-BKBJ
  3. TIMOLOL MALEATE [Concomitant]
     Active Substance: TIMOLOL MALEATE
  4. TYLENOL [Concomitant]
     Active Substance: ACETAMINOPHEN
  5. IBUPROFEN [Concomitant]
     Active Substance: IBUPROFEN
  6. ARTIFICIAL TEARS [Concomitant]
     Dosage: 0.1%-0.3%
  7. MOVE FREE JOINT HEALTH [Concomitant]
  8. MAGNESIUM [Concomitant]
     Active Substance: MAGNESIUM
  9. ZOLPIDEM TARTRATE [Concomitant]
     Active Substance: ZOLPIDEM TARTRATE
  10. VITAMIN D3 [Concomitant]
     Active Substance: CHOLECALCIFEROL
  11. GABAPENTIN [Concomitant]
     Active Substance: GABAPENTIN
  12. TRAMADOL HCL [Concomitant]
     Active Substance: TRAMADOL HYDROCHLORIDE
  13. BACLOFEN [Concomitant]
     Active Substance: BACLOFEN
  14. TRAZODONE HCL [Concomitant]
     Active Substance: TRAZODONE HYDROCHLORIDE

REACTIONS (7)
  - Eyelid skin dryness [Not Recovered/Not Resolved]
  - Foreign body sensation in eyes [Unknown]
  - Dry eye [Not Recovered/Not Resolved]
  - Eyelid pain [Not Recovered/Not Resolved]
  - Eye pain [Not Recovered/Not Resolved]
  - Product dose omission issue [Unknown]
  - Drug ineffective [Unknown]
